FAERS Safety Report 6934340-9 (Version None)
Quarter: 2010Q3

REPORT INFORMATION
  Report Type: 
  Country: None (occurrence: None)
  Receive Date: 20100820
  Receipt Date: 20100813
  Transmission Date: 20110219
  Serious: Yes (Disabling, Other)
  Sender: FDA-Public Use
  Company Number: A0875760A

PATIENT
  Age: 50 Year
  Sex: Female

DRUGS (6)
  1. LAMOTRIGINE [Suspect]
     Indication: DEPRESSION
     Dosage: 200MG TWICE PER DAY
     Route: 048
  2. LEVOTHYROXINE SODIUM [Concomitant]
  3. DIAZEPAM [Concomitant]
  4. RITALIN [Concomitant]
  5. ORAMORPH SR [Concomitant]
  6. AMBIEN [Concomitant]

REACTIONS (2)
  - DEPRESSION [None]
  - HEADACHE [None]
